FAERS Safety Report 7700699-8 (Version None)
Quarter: 2011Q3

REPORT INFORMATION
  Report Type: 
  Country: None (occurrence: None)
  Receive Date: 20110817
  Receipt Date: 20110802
  Transmission Date: 20111222
  Serious: Yes (Other)
  Sender: FDA-Public Use
  Company Number: FK201101559

PATIENT
  Age: 50 Year
  Sex: Female

DRUGS (1)
  1. GEMCITABINE [Suspect]
     Indication: BREAST CANCER METASTATIC

REACTIONS (3)
  - SKIN HYPERPIGMENTATION [None]
  - DERMATITIS [None]
  - SWEAT GLAND DISORDER [None]
